FAERS Safety Report 14608553 (Version 1)
Quarter: 2018Q1

REPORT INFORMATION
  Report Type: Spontaneous
  Country: FR (occurrence: FR)
  Receive Date: 20180307
  Receipt Date: 20180307
  Transmission Date: 20180509
  Serious: Yes (Hospitalization, Other)
  Sender: FDA-Public Use
  Company Number: FR-GILEAD-2018-0320564

PATIENT
  Age: 53 Year
  Sex: Male
  Weight: 80 kg

DRUGS (17)
  1. LEXOMIL [Concomitant]
     Active Substance: BROMAZEPAM
  2. FORTOVASE                          /01288701/ [Concomitant]
  3. REYATAZ [Concomitant]
     Active Substance: ATAZANAVIR SULFATE
  4. DOLUTEGRAVIR [Concomitant]
     Active Substance: DOLUTEGRAVIR
  5. VIREAD [Suspect]
     Active Substance: TENOFOVIR DISOPROXIL FUMARATE
     Indication: HIV INFECTION
     Dosage: 1 DF, QD
     Route: 065
     Dates: start: 20020225, end: 20070725
  6. PREZISTA [Concomitant]
     Active Substance: DARUNAVIR ETHANOLATE
  7. APTIVUS [Concomitant]
     Active Substance: TIPRANAVIR
     Indication: HIV INFECTION
  8. CELSENTRI [Concomitant]
     Active Substance: MARAVIROC
     Indication: HIV INFECTION
  9. INTELENCE [Concomitant]
     Active Substance: ETRAVIRINE
  10. KIVEXA [Concomitant]
     Active Substance: ABACAVIR SULFATE\LAMIVUDINE
  11. VENTOLINE                          /00139501/ [Concomitant]
     Active Substance: ALBUTEROL
  12. TELZIR [Concomitant]
     Active Substance: FOSAMPRENAVIR CALCIUM
  13. TRUVADA [Suspect]
     Active Substance: EMTRICITABINE\TENOFOVIR DISOPROXIL FUMARATE
     Indication: HIV INFECTION
     Dosage: 1 DF, QD
     Route: 065
     Dates: start: 20090720
  14. FOSCARNET [Concomitant]
     Active Substance: FOSCARNET
     Indication: HIV INFECTION
  15. AGENERASE [Concomitant]
     Active Substance: AMPRENAVIR
  16. ISENTRESS [Concomitant]
     Active Substance: RALTEGRAVIR POTASSIUM
  17. NORVIR [Concomitant]
     Active Substance: RITONAVIR
     Indication: HIV INFECTION

REACTIONS (5)
  - Treatment failure [Unknown]
  - Neoplasm malignant [Unknown]
  - Salivary gland cancer [Unknown]
  - Intervertebral disc protrusion [Unknown]
  - Opportunistic infection [Unknown]
